FAERS Safety Report 9797513 (Version 2)
Quarter: 2014Q1

REPORT INFORMATION
  Report Type: Report from Study
  Country: US (occurrence: US)
  Receive Date: 20140106
  Receipt Date: 20140106
  Transmission Date: 20141002
  Serious: Yes (Death)
  Sender: FDA-Public Use
  Company Number: PHEH2013US020792

PATIENT
  Age: 86 Year
  Sex: Female

DRUGS (3)
  1. EXELON PATCH [Suspect]
     Indication: DEMENTIA ALZHEIMER^S TYPE
     Dosage: 4.6 MG, DAILY
     Route: 062
     Dates: start: 20130829
  2. EXELON PATCH [Suspect]
     Dosage: UNK UKN, UNK
     Route: 062
  3. ANTIDEPRESSANTS [Concomitant]
     Indication: DEPRESSION
     Dosage: UNK UKN, UNK

REACTIONS (4)
  - Death [Fatal]
  - Performance status decreased [Recovered/Resolved]
  - Depression [Recovered/Resolved]
  - Drug ineffective [Recovered/Resolved]
